FAERS Safety Report 7430665-1 (Version None)
Quarter: 2011Q2

REPORT INFORMATION
  Report Type: 
  Country: None (occurrence: None)
  Receive Date: 20110421
  Receipt Date: 20090406
  Transmission Date: 20111010
  Serious: Yes (Hospitalization, Other)
  Sender: FDA-Public Use
  Company Number: DE-GENENTECH-317148

PATIENT
  Age: 73 Year
  Sex: Female

DRUGS (1)
  1. LUCENTIS [Suspect]
     Indication: MACULAR DEGENERATION
     Dosage: UNK
     Route: 031
     Dates: start: 20051202

REACTIONS (14)
  - HYPERTENSION [None]
  - SPINAL DISORDER [None]
  - BONE PAIN [None]
  - INTRAOCULAR PRESSURE INCREASED [None]
  - SINUSITIS [None]
  - HEADACHE [None]
  - CARDIOVASCULAR DISORDER [None]
  - NEURALGIA [None]
  - NASOPHARYNGITIS [None]
  - VISUAL ACUITY REDUCED [None]
  - RETINAL SCAR [None]
  - GLAUCOMA [None]
  - LENTICULAR PIGMENTATION [None]
  - NERVOUSNESS [None]
